FAERS Safety Report 9343679 (Version 2)
Quarter: 2013Q3

REPORT INFORMATION
  Report Type: Report from Study
  Country: BD (occurrence: BD)
  Receive Date: 20130612
  Receipt Date: 20130717
  Transmission Date: 20140515
  Serious: Yes (Death, Hospitalization, Other)
  Sender: FDA-Public Use
  Company Number: PHHY2013BD059187

PATIENT
  Age: 45 Year
  Sex: Female

DRUGS (5)
  1. ACLASTA [Suspect]
     Indication: OSTEOPOROSIS
     Dosage: ONCE A YEARLY
     Route: 042
     Dates: start: 20110628
  2. ACLASTA [Suspect]
     Dosage: ONCE A YEARLY
     Route: 042
     Dates: start: 20120615
  3. ANALGESICS [Concomitant]
     Dosage: UNK UKN, UNK
  4. ANGIOTENSIN II ANTAGONISTS [Concomitant]
     Dosage: UNK UKN, UNK
  5. INSULIN [Concomitant]
     Indication: DIABETES MELLITUS
     Dosage: UNK UKN, UNK

REACTIONS (16)
  - Kidney infection [Fatal]
  - Urinary hesitation [Fatal]
  - Rheumatic fever [Unknown]
  - Arthralgia [Unknown]
  - Postoperative wound infection [Unknown]
  - Impaired healing [Unknown]
  - Diabetes mellitus [Unknown]
  - General physical health deterioration [Unknown]
  - Altered state of consciousness [Unknown]
  - Infection [Unknown]
  - Pyrexia [Unknown]
  - Oedema [Unknown]
  - Burning sensation [Unknown]
  - Confusional state [Unknown]
  - Haemoglobin decreased [Unknown]
  - Lethargy [Unknown]
